FAERS Safety Report 4510571-2 (Version None)
Quarter: 2004Q4

REPORT INFORMATION
  Report Type: 
  Country: None (occurrence: None)
  Receive Date: 20041122
  Receipt Date: 20041115
  Transmission Date: 20050328
  Serious: Yes (Death)
  Sender: FDA-Public Use
  Company Number: GBWYE026618FEB03

PATIENT
  Age: 62 Year
  Sex: Male

DRUGS (8)
  1. RAPAMUNE [Suspect]
     Indication: IMMUNOSUPPRESSION
     Dosage: 2 MG 1X PER 1 DAY
     Route: 048
     Dates: start: 20021007, end: 20030223
  2. RAPAMUNE [Suspect]
     Indication: RENAL TRANSPLANT
     Dosage: 2 MG 1X PER 1 DAY
     Route: 048
     Dates: start: 20021007, end: 20030223
  3. PREDNISOLONE [Concomitant]
  4. MYCOPHENOLATE MOFETIL (MYCOPHENOLATE MOFETIL) [Concomitant]
  5. NIFEDIPINE [Concomitant]
  6. AMIODARONE HCL [Concomitant]
  7. ALFACALCIDOL (ALFACALCIDOL) [Concomitant]
  8. ATORVASTATIN CALCIUM [Concomitant]

REACTIONS (27)
  - ACUTE RESPIRATORY DISTRESS SYNDROME [None]
  - AORTIC ATHEROSCLEROSIS [None]
  - AORTIC STENOSIS [None]
  - AORTIC VALVE CALCIFICATION [None]
  - AORTIC VALVE DISEASE [None]
  - ARTERIOSCLEROSIS [None]
  - CARDIAC DISORDER [None]
  - CARDIAC FAILURE [None]
  - CONDITION AGGRAVATED [None]
  - ELECTROCARDIOGRAM QRS COMPLEX ABNORMAL [None]
  - FIBRIN [None]
  - GENERAL PHYSICAL HEALTH DETERIORATION [None]
  - HAEMOPTYSIS [None]
  - IDIOSYNCRATIC DRUG REACTION [None]
  - INTERSTITIAL LUNG DISEASE [None]
  - LUNG CONSOLIDATION [None]
  - MITRAL VALVE CALCIFICATION [None]
  - MITRAL VALVE DISEASE [None]
  - MITRAL VALVE INCOMPETENCE [None]
  - PNEUMONIA PRIMARY ATYPICAL [None]
  - PNEUMONITIS [None]
  - PULMONARY ALVEOLAR HAEMORRHAGE [None]
  - PULMONARY VASCULAR DISORDER [None]
  - RENAL FAILURE [None]
  - RESPIRATORY FAILURE [None]
  - TRANSPLANT REJECTION [None]
  - VENTRICULAR HYPERTROPHY [None]
